FAERS Safety Report 5018374-X (Version None)
Quarter: 2006Q2

REPORT INFORMATION
  Report Type: 
  Country: None (occurrence: None)
  Receive Date: 20060530
  Receipt Date: 20050624
  Transmission Date: 20061013
  Serious: Yes (Other)
  Sender: FDA-Public Use
  Company Number: 2005092240

PATIENT
  Age: 49 Year
  Sex: Female

DRUGS (3)
  1. PREGABALIN                                      ( PREGABALIN ) [Suspect]
     Indication: ILL-DEFINED DISORDER
     Dosage: 300 MG (150 MG, 2 IN 1 D), ORAL
     Route: 048
     Dates: start: 20050101
  2. CHOLESTEROL- AND TRIGLYCERIDE REDUCERS (CHOLESTEROL- AND TRIGLYCERIDE [Concomitant]
  3. STROGEN UNO (SERENOA REPENS EXTRACT) [Concomitant]

REACTIONS (4)
  - COORDINATION ABNORMAL [None]
  - FATIGUE [None]
  - HYPERTENSION [None]
  - TREMOR [None]
